FAERS Safety Report 7440557-X (Version None)
Quarter: 2011Q2

REPORT INFORMATION
  Report Type: 
  Country: None (occurrence: None)
  Receive Date: 20110427
  Receipt Date: 20110421
  Transmission Date: 20111010
  Serious: Yes (Other)
  Sender: FDA-Public Use
  Company Number: A0924011A

PATIENT
  Sex: Male

DRUGS (6)
  1. FLOVENT [Suspect]
     Indication: ASTHMA
     Route: 055
  2. SIMVASTATIN [Concomitant]
  3. EZETIMIBE [Concomitant]
  4. ALBUTEROL [Concomitant]
  5. OMEPRAZOLE [Concomitant]
  6. ADVAIR DISKUS 100/50 [Suspect]
     Indication: ASTHMA
     Dosage: 1PUFF PER DAY
     Route: 055
     Dates: start: 20090101

REACTIONS (2)
  - DRUG INEFFECTIVE [None]
  - ASTHMA [None]
